FAERS Safety Report 7691367-X (Version None)
Quarter: 2011Q3

REPORT INFORMATION
  Report Type: 
  Country: None (occurrence: None)
  Receive Date: 20110818
  Receipt Date: 20110803
  Transmission Date: 20111222
  Serious: Yes (Hospitalization)
  Sender: FDA-Public Use
  Company Number: PHEH2011US00852

PATIENT

DRUGS (2)
  1. DILTIAZEM [Suspect]
     Dosage: UNK UKN, UNK
  2. ALISKIREN [Suspect]
     Dosage: UNK UKN, UNK

REACTIONS (1)
  - ATRIOVENTRICULAR BLOCK [None]
